FAERS Safety Report 22202247 (Version 1)
Quarter: 2023Q2

REPORT INFORMATION
  Report Type: Spontaneous
  Country: US (occurrence: None)
  Receive Date: 20230411
  Receipt Date: 20230411
  Transmission Date: 20230722
  Serious: Yes (Hospitalization, Disabling)
  Sender: FDA-Public Use
  Company Number: None

PATIENT
  Age: 71 Year
  Sex: Male

DRUGS (11)
  1. NOURIANZ [Suspect]
     Active Substance: ISTRADEFYLLINE
     Indication: Parkinson^s disease
     Dosage: FREQUENCY : DAILY;?
     Route: 048
     Dates: start: 20211101
  2. LISINOPRIL [Concomitant]
     Active Substance: LISINOPRIL
  3. NOVOLIN INSULIN REG U-100 HUMAN [Concomitant]
  4. AVODART [Concomitant]
     Active Substance: DUTASTERIDE
  5. CARBIDOPA\LEVODOPA [Concomitant]
     Active Substance: CARBIDOPA\LEVODOPA
  6. CRANBERRY [Concomitant]
     Active Substance: CRANBERRY
  7. EXELON [Concomitant]
     Active Substance: RIVASTIGMINE TARTRATE
  8. LEVOTHYROXINE [Concomitant]
     Active Substance: LEVOTHYROXINE
  9. OMEPRAZOLE [Concomitant]
     Active Substance: OMEPRAZOLE
  10. ROSUVASTATIN [Concomitant]
     Active Substance: ROSUVASTATIN
  11. SERTRALINE [Concomitant]
     Active Substance: SERTRALINE HYDROCHLORIDE

REACTIONS (2)
  - Fall [None]
  - Posture abnormal [None]

NARRATIVE: CASE EVENT DATE: 20230411
